FAERS Safety Report 8917095 (Version 1)
Quarter: 2012Q4

REPORT INFORMATION
  Report Type: 
  Country: US (occurrence: US)
  Receive Date: 20121120
  Receipt Date: 20121120
  Transmission Date: 20130627
  Serious: No
  Sender: FDA-Public Use
  Company Number: US-009507513-1211USA006950

PATIENT
  Age: 69 Year
  Sex: Male

DRUGS (3)
  1. TICE BCG LIVE [Suspect]
     Indication: BLADDER CANCER
     Dosage: 1 DF, qw
     Route: 066
     Dates: start: 20121112
  2. TICE BCG LIVE [Suspect]
     Dosage: 1 DF, qw
     Route: 066
     Dates: start: 201211
  3. TICE BCG LIVE [Suspect]
     Dosage: 1 DF, qw
     Route: 066

REACTIONS (8)
  - Asthenia [Recovered/Resolved]
  - Chills [Recovered/Resolved]
  - Pyrexia [Recovered/Resolved]
  - Back pain [Recovered/Resolved]
  - Asthenia [Recovered/Resolved]
  - Chills [Recovered/Resolved]
  - Pyrexia [Recovered/Resolved]
  - Back pain [Recovered/Resolved]
